FAERS Safety Report 6743757-7 (Version None)
Quarter: 2010Q2

REPORT INFORMATION
  Report Type: 
  Country: None (occurrence: None)
  Receive Date: 20100526
  Receipt Date: 20100526
  Transmission Date: 20101027
  Serious: No
  Sender: FDA-Public Use
  Company Number: None

PATIENT
  Sex: Female

DRUGS (1)
  1. COPAXONE [Suspect]
     Indication: MULTIPLE SCLEROSIS
     Dates: start: 20091001, end: 20100525

REACTIONS (3)
  - INJECTION SITE REACTION [None]
  - MUSCULAR WEAKNESS [None]
  - SKIN DISCOLOURATION [None]
